FAERS Safety Report 7739748-X (Version None)
Quarter: 2011Q3

REPORT INFORMATION
  Report Type: 
  Country: None (occurrence: None)
  Receive Date: 20110909
  Receipt Date: 20110826
  Transmission Date: 20111222
  Serious: Yes (Other)
  Sender: FDA-Public Use
  Company Number: US-JNJFOC-20110813305

PATIENT
  Age: 55 Year
  Sex: Female

DRUGS (4)
  1. BENADRYL [Suspect]
     Indication: FOOD ALLERGY
     Dosage: 1 STRIP AS NEEDED
     Route: 048
  2. BENADRYL [Suspect]
     Route: 048
  3. BENADRYL [Suspect]
     Indication: FOOD ALLERGY
     Route: 048
  4. BENADRYL [Suspect]
     Route: 048

REACTIONS (3)
  - MULTIPLE SCLEROSIS [None]
  - THERAPEUTIC RESPONSE UNEXPECTED [None]
  - OFF LABEL USE [None]
